FAERS Safety Report 4884931-4 (Version None)
Quarter: 2006Q1

REPORT INFORMATION
  Report Type: 
  Country: None (occurrence: None)
  Receive Date: 20060119
  Receipt Date: 20060113
  Transmission Date: 20060701
  Serious: Yes (Hospitalization)
  Sender: FDA-Public Use
  Company Number: 2006UW00727

PATIENT
  Age: 18 Year
  Sex: Male

DRUGS (4)
  1. SEROQUEL [Suspect]
     Indication: BIPOLAR DISORDER
     Route: 048
  2. RISPERDAL [Concomitant]
  3. LITHIUM [Concomitant]
  4. CELEXA [Concomitant]

REACTIONS (1)
  - GLIOMA [None]
